FAERS Safety Report 11346604 (Version 1)
Quarter: 2015Q3

REPORT INFORMATION
  Report Type: Spontaneous
  Country: US (occurrence: US)
  Receive Date: 20150803
  Receipt Date: 20150803
  Transmission Date: 20151125
  Serious: No
  Sender: FDA-Public Use
  Company Number: US-ELI_LILLY_AND_COMPANY-US201007007585

PATIENT
  Age: 14 Year
  Sex: Male
  Weight: 63.49 kg

DRUGS (2)
  1. STRATTERA [Suspect]
     Active Substance: ATOMOXETINE HYDROCHLORIDE
     Indication: ATTENTION DEFICIT/HYPERACTIVITY DISORDER
     Dosage: 2 MG/KG, DAILY (1/D)
     Route: 048
  2. STRATTERA [Suspect]
     Active Substance: ATOMOXETINE HYDROCHLORIDE
     Dosage: 1.4 MG/KG, DAILY (1/D)
     Route: 048

REACTIONS (2)
  - Overdose [Recovered/Resolved]
  - Euphoric mood [Recovered/Resolved]
